FAERS Safety Report 9436817 (Version 3)
Quarter: 2013Q3

REPORT INFORMATION
  Report Type: Spontaneous
  Country: US (occurrence: US)
  Receive Date: 20130802
  Receipt Date: 20130828
  Transmission Date: 20140515
  Serious: No
  Sender: FDA-Public Use
  Company Number: US-PFIZER INC-2013221035

PATIENT
  Age: 57 Year
  Sex: Female

DRUGS (1)
  1. TETRACYCLINE HCL [Suspect]
     Dosage: UNK

REACTIONS (2)
  - Drug hypersensitivity [Unknown]
  - Vomiting [Unknown]
